FAERS Safety Report 11099493 (Version 3)
Quarter: 2015Q2

REPORT INFORMATION
  Report Type: Report from Study
  Country: IN (occurrence: IN)
  Receive Date: 20150508
  Receipt Date: 20150618
  Transmission Date: 20150821
  Serious: Yes (Other)
  Sender: FDA-Public Use
  Company Number: IN-BIOGENIDEC-2015BI058075

PATIENT
  Age: 32 Year
  Sex: Female
  Weight: 49 kg

DRUGS (12)
  1. THYRONORM [Concomitant]
     Active Substance: LEVOTHYROXINE
     Indication: BLOOD THYROID STIMULATING HORMONE
  2. SHELCAL [Concomitant]
     Indication: SUPPLEMENTATION THERAPY
     Route: 048
     Dates: start: 20150318
  3. BIIB017 [Suspect]
     Active Substance: PEGINTERFERON BETA-1A
     Indication: MULTIPLE SCLEROSIS
     Route: 058
     Dates: start: 20150510
  4. CHOLECALCIFEROL 60K [Concomitant]
     Route: 048
     Dates: start: 20150318
  5. ALTRADAY [Concomitant]
     Indication: PAIN IN EXTREMITY
     Route: 048
     Dates: start: 20150422, end: 20150501
  6. TRIQUILAR [Concomitant]
     Active Substance: DROSPIRENONE\ETHINYL ESTRADIOL
     Indication: ORAL CONTRACEPTION
     Route: 048
     Dates: start: 20090301, end: 20150429
  7. THYROXINE [Concomitant]
     Active Substance: LEVOTHYROXINE
     Indication: BLOOD THYROID STIMULATING HORMONE INCREASED
     Route: 048
     Dates: start: 20150502, end: 20150506
  8. THYROXINE [Concomitant]
     Active Substance: LEVOTHYROXINE
     Indication: BLOOD THYROID STIMULATING HORMONE INCREASED
     Route: 048
     Dates: start: 20150507
  9. BIIB017 [Suspect]
     Active Substance: PEGINTERFERON BETA-1A
     Indication: MULTIPLE SCLEROSIS
     Route: 058
     Dates: start: 20130723, end: 20150428
  10. BIO D3 MAX [Concomitant]
     Indication: MULTIPLE SCLEROSIS
     Route: 048
     Dates: start: 20120303
  11. THYROXINE [Concomitant]
     Active Substance: LEVOTHYROXINE
     Indication: BLOOD THYROID STIMULATING HORMONE INCREASED
     Route: 048
     Dates: start: 20130713, end: 20150501
  12. ZANTAC [Concomitant]
     Active Substance: RANITIDINE HYDROCHLORIDE
     Indication: PROPHYLAXIS
     Route: 048
     Dates: start: 20141101

REACTIONS (1)
  - Osteonecrosis [Not Recovered/Not Resolved]

NARRATIVE: CASE EVENT DATE: 20150427
